FAERS Safety Report 14965414 (Version 1)
Quarter: 2018Q2

REPORT INFORMATION
  Report Type: Spontaneous
  Country: US (occurrence: US)
  Receive Date: 20180601
  Receipt Date: 20180601
  Transmission Date: 20180711
  Serious: No
  Sender: FDA-Public Use
  Company Number: US-BAUSCH-BL-2018-000434

PATIENT
  Sex: Female
  Weight: 47.67 kg

DRUGS (2)
  1. AQUAPHOR [Concomitant]
     Active Substance: PETROLATUM
     Indication: ECZEMA
     Dosage: ON THE EYE LIDS AND AROUND THE EYES SINCE MANY MONTHS
  2. ELIDEL [Suspect]
     Active Substance: PIMECROLIMUS
     Indication: ECZEMA
     Dosage: ONCE OR TWICE DAILY AROUND HER EYES
     Route: 061
     Dates: start: 201708, end: 2017

REACTIONS (2)
  - Erythema [Recovered/Resolved]
  - Burning sensation [Recovered/Resolved]

NARRATIVE: CASE EVENT DATE: 2017
